FAERS Safety Report 8064439-8 (Version None)
Quarter: 2012Q1

REPORT INFORMATION
  Report Type: 
  Country: None (occurrence: None)
  Receive Date: 20120123
  Receipt Date: 20120117
  Transmission Date: 20120608
  Serious: Yes (Death, Hospitalization)
  Sender: FDA-Public Use
  Company Number: JP-PFIZER INC-2012012306

PATIENT
  Age: 77 Year
  Sex: Male

DRUGS (1)
  1. TEMSIROLIMUS [Suspect]
     Indication: RENAL CELL CARCINOMA
     Dosage: 25 MG, 1X/DAY
     Route: 042
     Dates: start: 20110927, end: 20111213

REACTIONS (3)
  - CARDIO-RESPIRATORY ARREST [None]
  - INTERSTITIAL LUNG DISEASE [None]
  - HERPES ZOSTER [None]
